FAERS Safety Report 14666437 (Version 1)
Quarter: 2018Q1

REPORT INFORMATION
  Report Type: Spontaneous
  Country: US (occurrence: US)
  Receive Date: 20180321
  Receipt Date: 20180321
  Transmission Date: 20180509
  Serious: No
  Sender: FDA-Public Use
  Company Number: US-BIOGEN-2018BI00539731

PATIENT
  Sex: Female

DRUGS (1)
  1. TYSABRI [Suspect]
     Active Substance: NATALIZUMAB
     Indication: MULTIPLE SCLEROSIS
     Route: 042
     Dates: start: 20131206

REACTIONS (6)
  - Ear pain [Unknown]
  - Learning disability [Unknown]
  - Weight increased [Unknown]
  - Depressed mood [Unknown]
  - Memory impairment [Unknown]
  - Dyslexia [Unknown]
